FAERS Safety Report 8429908 (Version 3)
Quarter: 2015Q1

REPORT INFORMATION
  Report Type: Spontaneous
  Country: None (occurrence: None)
  Receive Date: 20120215
  Receipt Date: 20150211
  Transmission Date: 20150721
  Serious: Yes (Other)
  Sender: FDA-Public Use
  Company Number: 1201-013

PATIENT
  Age: 88 Year
  Sex: Male

DRUGS (3)
  1. POVIDONE-IODINE. [Concomitant]
     Active Substance: POVIDONE-IODINE
  2. LIDOCAINE. [Concomitant]
     Active Substance: LIDOCAINE
  3. EYLEA [Suspect]
     Active Substance: AFLIBERCEPT
     Indication: AGE-RELATED MACULAR DEGENERATION
     Dosage: SINGLE, INTRAOCULAR
     Route: 031
     Dates: start: 20111128, end: 20111128

REACTIONS (8)
  - Vitreous disorder [None]
  - Vitreous floaters [None]
  - Endophthalmitis [None]
  - Vitritis [None]
  - Ecchymosis [None]
  - Non-infectious endophthalmitis [None]
  - Conjunctival haemorrhage [None]
  - Corneal oedema [None]

NARRATIVE: CASE EVENT DATE: 20111230
